FAERS Safety Report 23894389 (Version 2)
Quarter: 2024Q3

REPORT INFORMATION
  Report Type: Spontaneous
  Country: US (occurrence: US)
  Receive Date: 20240524
  Receipt Date: 20240905
  Transmission Date: 20241017
  Serious: Yes (Other)
  Sender: AUROBINDO
  Company Number: US-AUROBINDO-AUR-APL-2024-024353

PATIENT
  Age: 62 Year
  Sex: Female

DRUGS (4)
  1. BACLOFEN [Suspect]
     Active Substance: BACLOFEN
     Indication: Tetanus
     Dosage: 10 MILLIGRAM, 3 TIMES A DAY
     Route: 048
  2. BACLOFEN [Suspect]
     Active Substance: BACLOFEN
     Dosage: UNK
     Route: 037
  3. BACLOFEN [Suspect]
     Active Substance: BACLOFEN
     Dosage: 20 MILLIGRAM, 3 TIMES A DAY
     Route: 048
  4. VALIUM [Suspect]
     Active Substance: DIAZEPAM
     Indication: Tetany
     Dosage: 10 MILLIGRAM, 3 TIMES A DAY
     Route: 048

REACTIONS (2)
  - Treatment failure [Unknown]
  - Drug ineffective [Unknown]
